FAERS Safety Report 6137146-6 (Version None)
Quarter: 2009Q1

REPORT INFORMATION
  Report Type: 
  Country: None (occurrence: None)
  Receive Date: 20090326
  Receipt Date: 20090312
  Transmission Date: 20090719
  Serious: Yes (Death)
  Sender: FDA-Public Use
  Company Number: US025540

PATIENT
  Sex: Female

DRUGS (4)
  1. FENTORA [Suspect]
     Indication: NEURALGIA
     Dosage: BU
     Route: 002
     Dates: start: 20061001
  2. DURAGESIC (PARACETAMOL, ORPHENADRINE CITRATE) [Concomitant]
  3. FLEXERIL (CYCLOBEZAPRINE HYDROCHLORIDE) [Concomitant]
  4. VICOPROFIN (HYDROCODONE BITARTRATE, IBUPROFEN) [Concomitant]

REACTIONS (2)
  - SEPSIS [None]
  - SLEEP APNOEA SYNDROME [None]
